FAERS Safety Report 22343742 (Version 1)
Quarter: 2023Q2

REPORT INFORMATION
  Report Type: Report from Study
  Country: IL (occurrence: IL)
  Receive Date: 20230519
  Receipt Date: 20230519
  Transmission Date: 20230721
  Serious: Yes (Death)
  Sender: FDA-Public Use
  Company Number: IL-002147023-NVSC2023IL016538

PATIENT
  Age: 76 Year
  Sex: Female

DRUGS (1)
  1. KISQALI [Suspect]
     Active Substance: RIBOCICLIB
     Indication: Breast cancer metastatic
     Dosage: 400 MG, QD
     Route: 048
     Dates: start: 20230106

REACTIONS (6)
  - Death [Fatal]
  - Heart rate decreased [Unknown]
  - Nausea [Recovered/Resolved]
  - Oedema peripheral [Not Recovered/Not Resolved]
  - Constipation [Recovering/Resolving]
  - Nausea [Not Recovered/Not Resolved]

NARRATIVE: CASE EVENT DATE: 20230119
